FAERS Safety Report 26141375 (Version 1)
Quarter: 2025Q4

REPORT INFORMATION
  Report Type: Spontaneous
  Country: US (occurrence: None)
  Receive Date: 20251210
  Receipt Date: 20251210
  Transmission Date: 20260117
  Serious: No
  Sender: HALOZYME
  Company Number: US-HALOZYME THERAPEUTICS, INC.-2025-US-TX -02910

PATIENT
  Age: 43 Year

DRUGS (1)
  1. XYOSTED [Suspect]
     Active Substance: TESTOSTERONE ENANTHATE
     Indication: Hypogonadism
     Dosage: 100 MG/0.5ML, 2X/WK
     Route: 058

REACTIONS (2)
  - Off label use [Not Recovered/Not Resolved]
  - Injury associated with device [Unknown]
